FAERS Safety Report 8216797-9 (Version None)
Quarter: 2012Q1

REPORT INFORMATION
  Report Type: 
  Country: None (occurrence: None)
  Receive Date: 20120316
  Receipt Date: 20120313
  Transmission Date: 20120608
  Serious: Yes (Other)
  Sender: FDA-Public Use
  Company Number: RS-MERCK-1203USA01735

PATIENT
  Age: 6 Year
  Sex: Male
  Weight: 23 kg

DRUGS (2)
  1. SINGULAIR [Suspect]
     Indication: ASTHMA
     Route: 048
     Dates: start: 20111220, end: 20120309
  2. NASONEX [Concomitant]
     Indication: RHINITIS ALLERGIC
     Route: 065
     Dates: start: 20111220, end: 20120127

REACTIONS (5)
  - ANXIETY [None]
  - DECREASED INTEREST [None]
  - NIGHTMARE [None]
  - FEAR OF DEATH [None]
  - CRYING [None]
